FAERS Safety Report 5259768-7 (Version None)
Quarter: 2007Q1

REPORT INFORMATION
  Report Type: 
  Country: None (occurrence: None)
  Receive Date: 20061117
  Receipt Date: 20060516
  Transmission Date: 20070707
  Serious: Yes (Hospitalization)
  Sender: FDA-Public Use
  Company Number: US-JNJFOC-20060504298

PATIENT
  Age: 13 Year
  Sex: Male
  Weight: 46.8 kg

DRUGS (11)
  1. LEVAQUIN [Suspect]
     Indication: INFECTION PROPHYLAXIS
     Dosage: 500 MG
  2. LINEZOLID [Concomitant]
  3. ZYRTEC [Concomitant]
  4. FLONASE [Concomitant]
  5. FOLIC ACID [Concomitant]
  6. LOVENOX [Concomitant]
  7. COUMADIN [Concomitant]
  8. LACTINEX (LACTINEX) [Concomitant]
  9. PREVACID [Concomitant]
  10. SINGULAIR [Concomitant]
  11. DILAUDID [Concomitant]

REACTIONS (1)
  - POSTURAL ORTHOSTATIC TACHYCARDIA SYNDROME [None]
